FAERS Safety Report 8167192-2 (Version None)
Quarter: 2012Q1

REPORT INFORMATION
  Report Type: 
  Country: None (occurrence: None)
  Receive Date: 20120227
  Receipt Date: 20120223
  Transmission Date: 20120608
  Serious: Yes (Other)
  Sender: FDA-Public Use
  Company Number: IT-JNJFOC-20120212062

PATIENT
  Age: 25 Year
  Sex: Female

DRUGS (1)
  1. SPORANOX [Suspect]
     Indication: PRODUCT USED FOR UNKNOWN INDICATION
     Route: 048
     Dates: start: 20120223

REACTIONS (1)
  - SELF INJURIOUS BEHAVIOUR [None]
